FAERS Safety Report 6083563-2 (Version None)
Quarter: 2009Q1

REPORT INFORMATION
  Report Type: 
  Country: None (occurrence: None)
  Receive Date: 20090217
  Receipt Date: 20090209
  Transmission Date: 20090719
  Serious: No
  Sender: FDA-Public Use
  Company Number: DSU-2009-00335

PATIENT
  Sex: Female

DRUGS (1)
  1. WELCHOL [Suspect]
     Indication: TOTAL BILE ACIDS INCREASED
     Dosage: 625 MG (625 MG, QD) ,PER ORAL
     Route: 048
     Dates: start: 20090207, end: 20090207

REACTIONS (3)
  - CHOKING [None]
  - FEELING ABNORMAL [None]
  - FOREIGN BODY TRAUMA [None]
